FAERS Safety Report 25566870 (Version 4)
Quarter: 2025Q4

REPORT INFORMATION
  Report Type: Spontaneous
  Country: US (occurrence: US)
  Receive Date: 20250716
  Receipt Date: 20251008
  Transmission Date: 20260117
  Serious: Yes (Other)
  Sender: PFIZER
  Company Number: US-PFIZER INC-202500113951

PATIENT
  Age: 75 Year
  Sex: Female
  Weight: 87.075 kg

DRUGS (8)
  1. PROPOFOL [Suspect]
     Active Substance: PROPOFOL
     Indication: General anaesthesia
     Dosage: 100 MG ONCE
     Route: 042
     Dates: start: 20250529, end: 20250529
  2. PROPOFOL [Suspect]
     Active Substance: PROPOFOL
     Dosage: 50 MG ONCE
     Route: 042
     Dates: start: 20250529, end: 20250529
  3. PROPOFOL [Suspect]
     Active Substance: PROPOFOL
     Dosage: 50 MG ONCE
     Route: 042
     Dates: start: 20250529, end: 20250529
  4. ALEVE [Concomitant]
     Active Substance: NAPROXEN SODIUM
     Indication: Pain
     Dosage: 220 MG, AS NEEDED USES ABOUT TWICE WEEKLY
  5. AMLODIPINE [Concomitant]
     Active Substance: AMLODIPINE BESYLATE
     Indication: Hypertension
     Dosage: 10 MG, DAILY
  6. BENAZEPRIL HYDROCHLORIDE AND HYDROCHLOROTHIAZIDE [Concomitant]
     Active Substance: BENAZEPRIL HYDROCHLORIDE\HYDROCHLOROTHIAZIDE
     Indication: Hypertension
     Dosage: 20/12.5 MG DAILY
  7. BISMUTH SUBSALICYLATE [Concomitant]
     Active Substance: BISMUTH SUBSALICYLATE
     Dosage: NOT LISTED LIKELY PRN
  8. PANTOPRAZOLE [Concomitant]
     Active Substance: PANTOPRAZOLE
     Dosage: 40 MG, DAILY

REACTIONS (6)
  - Apnoea [Recovered/Resolved]
  - Oxygen saturation decreased [Recovered/Resolved]
  - Sedation complication [Recovered/Resolved]
  - Colonoscopy [Recovered/Resolved]
  - Oesophagogastroduodenoscopy [Recovered/Resolved]
  - Arteriovenous fistula [Unknown]

NARRATIVE: CASE EVENT DATE: 20250529
